FAERS Safety Report 9825419 (Version 1)
Quarter: 2013Q4

REPORT INFORMATION
  Report Type: Spontaneous
  Country: US (occurrence: None)
  Receive Date: 20131101
  Receipt Date: 20131101
  Transmission Date: 20140711
  Serious: Yes (Other)
  Sender: FDA-Public Use
  Company Number: ID NR. 2426_SP

PATIENT
  Age: 75 Year
  Sex: Male
  Weight: 60.4 kg

DRUGS (2)
  1. LEVOFLOXACIN INJ IN 5% DEXTROSE [Suspect]
     Indication: UROSEPSIS
     Dosage: 500 MG ONCE, IV
     Route: 042
     Dates: start: 20130624, end: 20130624
  2. TYLENOL  650 MG ORAL [Concomitant]

REACTIONS (1)
  - Urticaria [None]
